FAERS Safety Report 8522987-8 (Version None)
Quarter: 2012Q3

REPORT INFORMATION
  Report Type: 
  Country: None (occurrence: None)
  Receive Date: 20120720
  Receipt Date: 20120712
  Transmission Date: 20120928
  Serious: No
  Sender: FDA-Public Use
  Company Number: US-BIOGENIDEC-2012BI025256

PATIENT
  Age: 57 Year
  Sex: Male

DRUGS (1)
  1. AVONEX [Suspect]
     Indication: MULTIPLE SCLEROSIS
     Route: 030
     Dates: start: 20100426, end: 20120601

REACTIONS (8)
  - DYSPHAGIA [None]
  - MUSCLE SPASMS [None]
  - HYPOAESTHESIA [None]
  - HICCUPS [None]
  - PARAESTHESIA [None]
  - INSOMNIA [None]
  - DRUG INEFFECTIVE [None]
  - FACIAL PAIN [None]
